FAERS Safety Report 8167499-9 (Version None)
Quarter: 2012Q1

REPORT INFORMATION
  Report Type: 
  Country: None (occurrence: None)
  Receive Date: 20120221
  Receipt Date: 20120207
  Transmission Date: 20120608
  Serious: Yes (Other)
  Sender: FDA-Public Use
  Company Number: USW201202-000008

PATIENT
  Age: 65 Year
  Sex: Male

DRUGS (1)
  1. APOKYN [Suspect]
     Dosage: 0.2 ML AS NEEDED, SUBCUTANEOUS
     Route: 058
     Dates: start: 20060101, end: 20120201

REACTIONS (5)
  - SPLENOMEGALY [None]
  - PRURITUS [None]
  - ABDOMINAL PAIN UPPER [None]
  - SWELLING [None]
  - RETROPERITONEAL FIBROSIS [None]
